FAERS Safety Report 4713882-0 (Version None)
Quarter: 2005Q3

REPORT INFORMATION
  Report Type: 
  Country: None (occurrence: None)
  Receive Date: 20050712
  Receipt Date: 20050623
  Transmission Date: 20060218
  Serious: Yes (Hospitalization, Other)
  Sender: FDA-Public Use
  Company Number: US_0410106496

PATIENT
  Age: 43 Year
  Sex: Female
  Weight: 80 kg

DRUGS (26)
  1. ZYPREXA [Suspect]
     Indication: AFFECTIVE DISORDER
     Dosage: 15 MG/1 AT BEDTIME
     Dates: start: 20010226
  2. FLUOXETINE (FLUOXETINE 00724401/) [Concomitant]
  3. OLANZIPINE/FLUOXETINE CAPSULE [Concomitant]
  4. RISPERDAL [Concomitant]
  5. BUPROPION HCL [Concomitant]
  6. CITALOPRAM HYDROBROMIDE [Concomitant]
  7. GLIPIZIDE [Concomitant]
  8. METFORMIN [Concomitant]
  9. ZOLOFT [Concomitant]
  10. SYNTHROID [Concomitant]
  11. NORVASC [Concomitant]
  12. ATENOLOL [Concomitant]
  13. COMBIVENT [Concomitant]
  14. ALLEGRA [Concomitant]
  15. CYCLOBENZAPRINE HCL [Concomitant]
  16. NEURONTIN [Concomitant]
  17. CELEBREX [Concomitant]
  18. PROMETHAZINE [Concomitant]
  19. PRILOSEC (OMEPRAZOLE RATIOPHARM) [Concomitant]
  20. SINGULAIR [Concomitant]
  21. CHLORDIAZEPOXIDE [Concomitant]
  22. TRAZODONE HCL [Concomitant]
  23. DIPHENHYDRAMINE HCL [Concomitant]
  24. CEPHALEXIN [Concomitant]
  25. DOXEPIN HCL [Concomitant]
  26. .. [Concomitant]

REACTIONS (26)
  - ABDOMINAL PAIN LOWER [None]
  - ABDOMINAL PAIN UPPER [None]
  - BILIARY DILATATION [None]
  - BLOOD CREATININE DECREASED [None]
  - BLOOD GLUCOSE INCREASED [None]
  - DEHYDRATION [None]
  - DIABETES MELLITUS [None]
  - DIZZINESS [None]
  - GALLBLADDER ENLARGEMENT [None]
  - GASTRITIS [None]
  - HEADACHE [None]
  - HEPATIC CIRRHOSIS [None]
  - HEPATIC STEATOSIS [None]
  - HEPATITIS [None]
  - HEPATOSPLENOMEGALY [None]
  - HYPERKALAEMIA [None]
  - HYPOTHYROIDISM [None]
  - IMPAIRED GASTRIC EMPTYING [None]
  - LIVER DISORDER [None]
  - OSTEOARTHRITIS [None]
  - OVARIAN DISORDER [None]
  - PAIN [None]
  - PERIPHERAL MOTOR NEUROPATHY [None]
  - RENAL FAILURE ACUTE [None]
  - THROMBOCYTOPENIA [None]
  - ULTRASOUND PELVIS ABNORMAL [None]
